FAERS Safety Report 23919889 (Version 1)
Quarter: 2024Q2

REPORT INFORMATION
  Report Type: Spontaneous
  Country: US (occurrence: None)
  Receive Date: 20240529
  Receipt Date: 20240529
  Transmission Date: 20240716
  Serious: No
  Sender: FDA-Public Use
  Company Number: None

PATIENT
  Age: 32 Year
  Sex: Male

DRUGS (11)
  1. TACROLIMUS [Suspect]
     Active Substance: TACROLIMUS
     Indication: Renal transplant
     Dosage: FREQUENCY : TWICE A DAY;?
     Route: 048
     Dates: start: 20240319
  2. CLOTIMAZOLE [Concomitant]
  3. MYCOPHENOLATE [Concomitant]
  4. PANTOPRAZOLE [Concomitant]
  5. PREDNISONE [Concomitant]
     Active Substance: PREDNISONE
  6. BACTRIM SS [Concomitant]
  7. VALCYTE [Concomitant]
  8. AMLODIPINE [Concomitant]
     Active Substance: AMLODIPINE BESYLATE
  9. ANTACID [Concomitant]
     Active Substance: ALUMINUM HYDROXIDE\CALCIUM CARBONATE\DIMETHICONE\MAGNESIUM HYDROXIDE
  10. CALCIUM ACETATE [Concomitant]
  11. HYDRALAZINE [Concomitant]
     Active Substance: HYDRALAZINE HYDROCHLORIDE

REACTIONS (2)
  - Dizziness [None]
  - Orthostatic hypotension [None]

NARRATIVE: CASE EVENT DATE: 20240424
